FAERS Safety Report 21022739 (Version 1)
Quarter: 2022Q2

REPORT INFORMATION
  Report Type: Spontaneous
  Country: None (occurrence: JP)
  Receive Date: 20220629
  Receipt Date: 20220629
  Transmission Date: 20220721
  Serious: Yes (Other)
  Sender: FDA-Public Use
  Company Number: JP-Acacia Pharma Limited-2130397

PATIENT
  Age: 81 Year
  Sex: Female

DRUGS (4)
  1. BYFAVO [Suspect]
     Active Substance: REMIMAZOLAM BESYLATE
     Indication: General anaesthesia
     Route: 040
     Dates: start: 20211028, end: 20211028
  2. REMIFENTANIL HYDROCHLORIDE [Suspect]
     Active Substance: REMIFENTANIL HYDROCHLORIDE
     Route: 042
     Dates: start: 20211028, end: 20211028
  3. ROCURONIUM [Concomitant]
     Active Substance: ROCURONIUM BROMIDE
     Route: 042
     Dates: start: 20211028
  4. FENTANYL [Concomitant]
     Active Substance: FENTANYL
     Dates: start: 20211028

REACTIONS (2)
  - Hypotension [Recovered/Resolved]
  - Drug interaction [Unknown]

NARRATIVE: CASE EVENT DATE: 20211028
